FAERS Safety Report 13906837 (Version 1)
Quarter: 2017Q3

REPORT INFORMATION
  Report Type: Spontaneous
  Country: AR (occurrence: AR)
  Receive Date: 20170825
  Receipt Date: 20170825
  Transmission Date: 20171127
  Serious: Yes (Death, Other)
  Sender: FDA-Public Use
  Company Number: AR-PFIZER INC-2017368715

PATIENT
  Age: 71 Year
  Sex: Male

DRUGS (1)
  1. SUTENT [Suspect]
     Active Substance: SUNITINIB MALATE
     Indication: GASTROINTESTINAL STROMAL TUMOUR
     Dosage: 50 MG, DAILY
     Dates: start: 20161220

REACTIONS (1)
  - Death [Fatal]

NARRATIVE: CASE EVENT DATE: 20170809
